FAERS Safety Report 5259557-3 (Version None)
Quarter: 2007Q1

REPORT INFORMATION
  Report Type: 
  Country: None (occurrence: None)
  Receive Date: 20070306
  Receipt Date: 20070222
  Transmission Date: 20070707
  Serious: Yes (Hospitalization)
  Sender: FDA-Public Use
  Company Number: 2007-154907-NL

PATIENT
  Age: 61 Year
  Sex: Female

DRUGS (4)
  1. MIRTAZAPINE [Suspect]
     Indication: DEPRESSION
     Dosage: 30 MG ORAL
     Route: 048
     Dates: start: 20070203, end: 20070201
  2. ZOLPIDEM [Concomitant]
  3. OXAZEPAM [Concomitant]
  4. OMEPRAZOLE [Concomitant]

REACTIONS (1)
  - EPILEPSY [None]
